FAERS Safety Report 4302020-4 (Version None)
Quarter: 2004Q1

REPORT INFORMATION
  Report Type: 
  Country: None (occurrence: None)
  Receive Date: 20040220
  Receipt Date: 20040126
  Transmission Date: 20041129
  Serious: Yes (Hospitalization)
  Sender: FDA-Public Use
  Company Number: EWC040137801

PATIENT
  Sex: Female

DRUGS (11)
  1. OLANZAPINE [Suspect]
     Indication: ABNORMAL BEHAVIOUR
     Dosage: 20 MG DAY
     Route: 048
     Dates: start: 20030804
  2. OLANZAPINE [Suspect]
     Indication: MENTAL DISORDER
     Dosage: 20 MG DAY
     Route: 048
     Dates: start: 20030804
  3. DEPAKENE [Concomitant]
  4. EFFEXOR [Concomitant]
  5. CLOTIAPINE [Concomitant]
  6. LEVOTHYROXINE SODIUM [Concomitant]
  7. ZOCOR [Concomitant]
  8. PLAVIX [Concomitant]
  9. METOPROLOL SUCCINATE [Concomitant]
  10. XANAX [Concomitant]
  11. ANTRA MUPS (OMEPRAZOLE MAGNESIUM) [Concomitant]

REACTIONS (6)
  - ALANINE AMINOTRANSFERASE INCREASED [None]
  - ASPARTATE AMINOTRANSFERASE INCREASED [None]
  - BLOOD LACTATE DEHYDROGENASE INCREASED [None]
  - GAMMA-GLUTAMYLTRANSFERASE INCREASED [None]
  - LIVER DISORDER [None]
  - LIVER FUNCTION TEST ABNORMAL [None]
